FAERS Safety Report 4899338-3 (Version None)
Quarter: 2006Q1

REPORT INFORMATION
  Report Type: 
  Country: None (occurrence: None)
  Receive Date: 20060131
  Receipt Date: 20060124
  Transmission Date: 20060701
  Serious: Yes (Life-Threatening, Other)
  Sender: FDA-Public Use
  Company Number: 2006004910

PATIENT
  Age: 28 Year
  Sex: Female
  Weight: 50 kg

DRUGS (4)
  1. ZOLOFT [Suspect]
     Indication: DEPRESSION
     Dosage: 50 MG (50MG, 1 IN 1 D)
     Dates: start: 20051001, end: 20051229
  2. ZOLOFT [Suspect]
     Indication: LATENT TETANY
     Dosage: 50 MG (50MG, 1 IN 1 D)
     Dates: start: 20051001, end: 20051229
  3. ZOLOFT [Suspect]
     Indication: PROPHYLAXIS
     Dosage: 50 MG (50MG, 1 IN 1 D)
     Dates: start: 20051001, end: 20051229
  4. DESOGESTREL/ETHINYLESTRADIOL (DESOGESTREL, ETHINYLESTRADIOL) [Concomitant]

REACTIONS (6)
  - ANOREXIA [None]
  - ASTHENIA [None]
  - DEHYDRATION [None]
  - DIARRHOEA [None]
  - NAUSEA [None]
  - WEIGHT DECREASED [None]
